FAERS Safety Report 15785013 (Version 2)
Quarter: 2019Q1

REPORT INFORMATION
  Report Type: Spontaneous
  Country: SE (occurrence: SE)
  Receive Date: 20190103
  Receipt Date: 20190214
  Transmission Date: 20190417
  Serious: Yes (Congenital Anomaly)
  Sender: FDA-Public Use
  Company Number: SE-ACCORD-099387

PATIENT

DRUGS (1)
  1. OXYBUTYNIN/OXYBUTYNIN HYDROCHLORIDE [Suspect]
     Active Substance: OXYBUTYNIN
     Indication: HYPERHIDROSIS
     Dosage: 0.5 TABL X 1
     Route: 064
     Dates: start: 20171201, end: 20180122

REACTIONS (4)
  - Congenital central nervous system anomaly [Unknown]
  - Skull malformation [Unknown]
  - Foetal exposure during pregnancy [Unknown]
  - Off label use [Unknown]

NARRATIVE: CASE EVENT DATE: 20171201
